FAERS Safety Report 6066548-1 (Version None)
Quarter: 2009Q1

REPORT INFORMATION
  Report Type: 
  Country: None (occurrence: None)
  Receive Date: 20090205
  Receipt Date: 20090129
  Transmission Date: 20090719
  Serious: Yes (Hospitalization)
  Sender: FDA-Public Use
  Company Number: A0745302A

PATIENT
  Age: 62 Year
  Sex: Male
  Weight: 99.1 kg

DRUGS (1)
  1. AVANDIA [Suspect]
     Dosage: 4MG VARIABLE DOSE
     Route: 048

REACTIONS (3)
  - CARDIOVASCULAR DISORDER [None]
  - CHEST PAIN [None]
  - MUSCULOSKELETAL PAIN [None]
